FAERS Safety Report 10417805 (Version 1)
Quarter: 2014Q3

REPORT INFORMATION
  Report Type: Spontaneous
  Country: US (occurrence: None)
  Receive Date: 20140828
  Receipt Date: 20140828
  Transmission Date: 20150326
  Serious: Yes (Other)
  Sender: FDA-Public Use
  Company Number: None

PATIENT
  Age: 23 Year
  Sex: Female

DRUGS (1)
  1. SOLIRIS [Suspect]
     Active Substance: ECULIZUMAB
     Indication: PAROXYSMAL NOCTURNAL HAEMOGLOBINURIA
     Route: 042
     Dates: start: 20140702, end: 20140730

REACTIONS (5)
  - Infusion related reaction [None]
  - Peripheral swelling [None]
  - Rash [None]
  - Chills [None]
  - Feeling hot [None]

NARRATIVE: CASE EVENT DATE: 20140730
